FAERS Safety Report 7763292-7 (Version None)
Quarter: 2011Q3

REPORT INFORMATION
  Report Type: 
  Country: None (occurrence: None)
  Receive Date: 20110920
  Receipt Date: 20110218
  Transmission Date: 20111222
  Serious: No
  Sender: FDA-Public Use
  Company Number: US-BAYER-2011-053867

PATIENT
  Age: 77 Year
  Sex: Female
  Weight: 91 kg

DRUGS (10)
  1. TRICOR [Concomitant]
  2. MECLIZINE [Concomitant]
  3. HYDROCHLOROTHIAZID [Concomitant]
  4. ALEVE (CAPLET) [Suspect]
     Indication: ANALGESIC THERAPY
     Dosage: 6-7 UNITS
     Route: 048
     Dates: start: 20101201
  5. TENORMIN [Concomitant]
  6. JANUVIA [Concomitant]
  7. DIOVAN HCT [Concomitant]
  8. LIPITOR [Concomitant]
  9. GLUCOPHAGE [Concomitant]
  10. EQUATE ASPIRIN [Concomitant]

REACTIONS (1)
  - NO ADVERSE EVENT [None]
